FAERS Safety Report 21221620 (Version 1)
Quarter: 2022Q3

REPORT INFORMATION
  Report Type: Spontaneous
  Country: US (occurrence: None)
  Receive Date: 20220816
  Receipt Date: 20220816
  Transmission Date: 20221027
  Serious: Yes (Life-Threatening)
  Sender: FDA-Public Use
  Company Number: None

PATIENT
  Age: 72 Year
  Sex: Female
  Weight: 68.5 kg

DRUGS (18)
  1. INLYTA [Suspect]
     Active Substance: AXITINIB
     Indication: Malignant neoplasm of renal pelvis
     Dosage: FREQUENCY : TWICE A DAY;?
     Route: 048
     Dates: start: 20220617, end: 20220728
  2. ALPHA LIPOIC ACID [Concomitant]
     Active Substance: .ALPHA.-LIPOIC ACID
  3. AMITRIPTYLINE [Concomitant]
     Active Substance: AMITRIPTYLINE
  4. CALCITRIOL [Concomitant]
     Active Substance: CALCITRIOL
  5. CLONAZEPAM [Concomitant]
     Active Substance: CLONAZEPAM
  6. COMBIVENT [Concomitant]
     Active Substance: ALBUTEROL SULFATE\IPRATROPIUM BROMIDE
  7. GABAPENTIN [Concomitant]
     Active Substance: GABAPENTIN
  8. KEYTRUDA [Concomitant]
     Active Substance: PEMBROLIZUMAB
  9. LEVOTHYROXINE [Concomitant]
     Active Substance: LEVOTHYROXINE
  10. METOPROLOL [Concomitant]
     Active Substance: METOPROLOL
  11. OMEPRAZOLE [Concomitant]
     Active Substance: OMEPRAZOLE
  12. ROPINIROLE [Concomitant]
     Active Substance: ROPINIROLE
  13. ROSUVASTATIN [Concomitant]
     Active Substance: ROSUVASTATIN
  14. VITAMIN D3 [Concomitant]
     Active Substance: CHOLECALCIFEROL
  15. TAMOXIFEN [Concomitant]
     Active Substance: TAMOXIFEN
  16. TORSEMIDE [Concomitant]
     Active Substance: TORSEMIDE
  17. TRELEGY ELLIPTA [Concomitant]
     Active Substance: FLUTICASONE FUROATE\UMECLIDINIUM BROMIDE\VILANTEROL TRIFENATATE
  18. TYLENOL WITH CODEINE [Concomitant]
     Active Substance: ACETAMINOPHEN\CODEINE PHOSPHATE

REACTIONS (4)
  - Posterior reversible encephalopathy syndrome [None]
  - Confusional state [None]
  - Hallucination [None]
  - White matter lesion [None]

NARRATIVE: CASE EVENT DATE: 20220726
